FAERS Safety Report 8410460-7 (Version None)
Quarter: 2012Q2

REPORT INFORMATION
  Report Type: 
  Country: None (occurrence: None)
  Receive Date: 20120529
  Receipt Date: 20011017
  Transmission Date: 20120825
  Serious: Yes (Life-Threatening, Hospitalization)
  Sender: FDA-Public Use
  Company Number: 02100-USA-02-0003

PATIENT
  Age: 89 Year
  Sex: Female

DRUGS (1)
  1. PLETAL [Suspect]
     Dosage: 100 MG, BID, ORAL
     Route: 048
     Dates: start: 20010806, end: 20010812

REACTIONS (8)
  - CONFUSIONAL STATE [None]
  - CARDIAC FAILURE CONGESTIVE [None]
  - HYPOTENSION [None]
  - CHOLECYSTITIS CHRONIC [None]
  - RENAL FAILURE ACUTE [None]
  - RENAL TUBULAR NECROSIS [None]
  - DYSPNOEA [None]
  - DYSARTHRIA [None]
